FAERS Safety Report 8789282 (Version 2)
Quarter: 2012Q4

REPORT INFORMATION
  Report Type: Spontaneous
  Country: US (occurrence: None)
  Receive Date: 20120904
  Receipt Date: 20120919
  Transmission Date: 20130627
  Serious: Yes (Hospitalization)
  Sender: FDA-Public Use
  Company Number: DSA_57705_2012

PATIENT
  Sex: Female

DRUGS (7)
  1. XENAZINE [Suspect]
     Indication: DYSTONIA
     Route: 048
     Dates: start: 20120510, end: 20120818
  2. XENAZINE [Suspect]
     Indication: HUNTINGTON^S DISEASE
     Route: 048
     Dates: start: 20120510, end: 20120818
  3. XENAZINE [Suspect]
     Indication: DYSTONIA
     Dosage: DF Oral
     Route: 048
     Dates: start: 20120518, end: 2012
  4. XENAZINE [Suspect]
     Indication: HUNTINGTON^S DISEASE
     Dosage: DF Oral
     Route: 048
     Dates: start: 20120518, end: 2012
  5. XENAZINE [Suspect]
     Indication: DYSTONIA
  6. XENAZINE [Suspect]
     Indication: HUNTINGTON^S DISEASE
  7. HYDROCHLOROTHIAZIDE [Suspect]
     Indication: BLOOD PRESSURE
     Dosage: DF

REACTIONS (6)
  - Dyspnoea [None]
  - Nasal congestion [None]
  - Asthenia [None]
  - Blood potassium decreased [None]
  - Dehydration [None]
  - Fall [None]
